FAERS Safety Report 12276802 (Version 1)
Quarter: 2016Q2

REPORT INFORMATION
  Report Type: Spontaneous
  Country: US (occurrence: US)
  Receive Date: 20160418
  Receipt Date: 20160418
  Transmission Date: 20160815
  Serious: No
  Sender: FDA-Public Use
  Company Number: US-PFIZER INC-2016209835

PATIENT
  Sex: Female

DRUGS (3)
  1. CELEBREX [Suspect]
     Active Substance: CELECOXIB
     Dosage: UNK
  2. HYDROCODONE [Suspect]
     Active Substance: HYDROCODONE
     Dosage: UNK
  3. TERAZOSIN [Suspect]
     Active Substance: TERAZOSIN\TERAZOSIN HYDROCHLORIDE
     Dosage: UNK

REACTIONS (1)
  - Drug hypersensitivity [Unknown]
